FAERS Safety Report 18991321 (Version 1)
Quarter: 2021Q1

REPORT INFORMATION
  Report Type: Spontaneous
  Country: US (occurrence: US)
  Receive Date: 20210310
  Receipt Date: 20210310
  Transmission Date: 20210420
  Serious: Yes (Other)
  Sender: FDA-Public Use
  Company Number: US-INCYTE CORPORATION-2021IN001784

PATIENT

DRUGS (1)
  1. JAKAFI [Suspect]
     Active Substance: RUXOLITINIB
     Indication: CHRONIC GRAFT VERSUS HOST DISEASE
     Route: 065

REACTIONS (6)
  - Pneumonia cytomegaloviral [Recovered/Resolved]
  - Septic shock [Recovered/Resolved]
  - Off label use [Unknown]
  - Gastroenteritis adenovirus [Recovered/Resolved]
  - Pneumonia pneumococcal [Recovered/Resolved]
  - Neutropenia [Recovered/Resolved]
